FAERS Safety Report 9722476 (Version 1)
Quarter: 2013Q4

REPORT INFORMATION
  Report Type: Report from Study
  Country: CA (occurrence: CA)
  Receive Date: 20131202
  Receipt Date: 20131202
  Transmission Date: 20140711
  Serious: Yes (Death, Other)
  Sender: FDA-Public Use
  Company Number: PHHY2013CA138951

PATIENT
  Sex: 0

DRUGS (1)
  1. SANDOSTATIN LAR [Suspect]
     Dosage: UNK UKN, UNK
     Route: 030

REACTIONS (3)
  - Death [Fatal]
  - Diabetes mellitus [Unknown]
  - Blood glucose increased [Unknown]
